FAERS Safety Report 8429146-8 (Version None)
Quarter: 2012Q2

REPORT INFORMATION
  Report Type: 
  Country: None (occurrence: None)
  Receive Date: 20120612
  Receipt Date: 20120604
  Transmission Date: 20120825
  Serious: Yes (Hospitalization)
  Sender: FDA-Public Use
  Company Number: US-BAYER-2012-056853

PATIENT
  Age: 30 Year
  Sex: Female

DRUGS (7)
  1. CITALOPRAM HYDROBROMIDE [Concomitant]
     Indication: ANXIETY
     Dosage: 30 MG, DAILY
     Route: 048
     Dates: start: 20101104
  2. CELEXA [Concomitant]
     Dosage: UNK
     Dates: start: 20080813
  3. XANAX [Concomitant]
     Dosage: UNK
     Dates: start: 20080813
  4. METOPROLOL TARTRATE [Concomitant]
     Indication: TACHYCARDIA
     Dosage: 50 MG, DAILY
     Route: 048
     Dates: start: 20101104
  5. YASMIN [Suspect]
  6. RISPERIDONE [Concomitant]
     Dosage: UNK
     Dates: start: 20101104
  7. SPIRONOLACTONE [Concomitant]
     Indication: HIRSUTISM
     Dosage: 25 MG, DAILY
     Route: 048
     Dates: start: 20101104

REACTIONS (3)
  - DEEP VEIN THROMBOSIS [None]
  - CHOLELITHIASIS [None]
  - PULMONARY EMBOLISM [None]
